FAERS Safety Report 11515668 (Version 9)
Quarter: 2016Q2

REPORT INFORMATION
  Report Type: Report from Study
  Country: CN (occurrence: CN)
  Receive Date: 20150916
  Receipt Date: 20160422
  Transmission Date: 20160815
  Serious: Yes (Death, Hospitalization)
  Sender: FDA-Public Use
  Company Number: CN-ASTRAZENECA-2015SE86865

PATIENT
  Age: 15777 Day
  Sex: Male
  Weight: 53 kg

DRUGS (15)
  1. PACLITAXEL. [Suspect]
     Active Substance: PACLITAXEL
     Indication: GASTRIC CANCER
     Dosage: 80 MG/M2 ON DAYS 1, 8 AND 15 OF A 28 DAY CYCLE.
     Route: 042
     Dates: start: 20150703, end: 20150703
  2. OXYCODONE ACETAMINOPHEN [Suspect]
     Active Substance: ACETAMINOPHEN\OXYCODONE HYDROCHLORIDE
     Indication: ANALGESIC THERAPY
     Dosage: 1 TABLET/CAPSULE EVERY EIGHT HOURS
     Route: 048
     Dates: start: 20150709, end: 20150716
  3. AZD2281 [Suspect]
     Active Substance: OLAPARIB
     Indication: GASTRIC CANCER
     Route: 048
     Dates: start: 20150703, end: 20150902
  4. AZD2281 [Suspect]
     Active Substance: OLAPARIB
     Indication: GASTRIC CANCER
     Route: 048
     Dates: start: 20150903, end: 20150903
  5. PACLITAXEL. [Suspect]
     Active Substance: PACLITAXEL
     Indication: GASTRIC CANCER
     Dosage: 80 MG/M2 ON DAYS 1, 8 AND 15 OF A 28 DAY CYCLE.
     Route: 042
     Dates: start: 20150814, end: 20150814
  6. CIMETIDINE [Concomitant]
     Active Substance: CIMETIDINE
     Indication: ALLERGY PROPHYLAXIS
     Route: 048
     Dates: start: 20150814, end: 20150814
  7. GLUCOSE [Concomitant]
     Active Substance: DEXTROSE
     Indication: NUTRITIONAL SUPPLEMENTATION
     Route: 042
     Dates: start: 20150814, end: 20150814
  8. PROMETHAZINE [Concomitant]
     Active Substance: PROMETHAZINE\PROMETHAZINE HYDROCHLORIDE
     Indication: ALLERGY PROPHYLAXIS
     Route: 030
     Dates: start: 20150814, end: 20150814
  9. PALONOSETRON [Concomitant]
     Active Substance: PALONOSETRON
     Indication: PROPHYLAXIS OF NAUSEA AND VOMITING
     Route: 042
     Dates: start: 20150814, end: 20150814
  10. PACLITAXEL. [Suspect]
     Active Substance: PACLITAXEL
     Indication: GASTRIC CANCER
     Dosage: 80 MG/M2 ON DAYS 1, 8 AND 15 OF A 28 DAY CYCLE.
     Route: 042
     Dates: start: 20150710, end: 20150710
  11. PACLITAXEL. [Suspect]
     Active Substance: PACLITAXEL
     Indication: GASTRIC CANCER
     Dosage: 80 MG/M2 ON DAYS 1, 8 AND 15 OF A 28 DAY CYCLE.
     Route: 042
     Dates: start: 20150717, end: 20150717
  12. PACLITAXEL. [Suspect]
     Active Substance: PACLITAXEL
     Indication: GASTRIC CANCER
     Dosage: 80 MG/M2 ON DAYS 1, 8 AND 15 OF A 28 DAY CYCLE.
     Route: 042
     Dates: start: 20150731, end: 20150731
  13. PACLITAXEL. [Suspect]
     Active Substance: PACLITAXEL
     Indication: GASTRIC CANCER
     Dosage: 80 MG/M2 ON DAYS 1, 8 AND 15 OF A 28 DAY CYCLE.
     Route: 042
     Dates: start: 20150828, end: 20150828
  14. GRANULOCYTE COLONY STIMULATING FACTOR [Concomitant]
     Active Substance: GRANULOCYTE COLONY-STIMULATING FACTOR NOS
     Indication: WHITE BLOOD CELL COUNT DECREASED
     Route: 058
     Dates: start: 20150817, end: 20150819
  15. PACLITAXEL. [Suspect]
     Active Substance: PACLITAXEL
     Indication: GASTRIC CANCER
     Dosage: 80 MG/M2 ON DAYS 1, 8 AND 15 OF A 28 DAY CYCLE.
     Route: 042
     Dates: start: 20150807, end: 20150807

REACTIONS (1)
  - Liver injury [Fatal]

NARRATIVE: CASE EVENT DATE: 20150821
